FAERS Safety Report 6263359-9 (Version None)
Quarter: 2009Q3

REPORT INFORMATION
  Report Type: 
  Country: None (occurrence: None)
  Receive Date: 20090710
  Receipt Date: 20080709
  Transmission Date: 20100115
  Serious: No
  Sender: FDA-Public Use
  Company Number: A0736940A

PATIENT
  Age: 7 Year
  Sex: Male

DRUGS (6)
  1. FLOVENT [Suspect]
     Indication: ASTHMA
     Dosage: 2PUFF TWICE PER DAY
     Route: 055
     Dates: start: 20060101, end: 20080707
  2. ADVAIR HFA [Suspect]
     Indication: ASTHMA
     Route: 055
     Dates: start: 20080708
  3. SINGULAIR [Concomitant]
  4. ZYRTEC [Concomitant]
  5. XOPENEX [Concomitant]
  6. FLONASE [Concomitant]

REACTIONS (3)
  - DYSPNOEA EXERTIONAL [None]
  - INCREASED APPETITE [None]
  - LUNG DISORDER [None]
